FAERS Safety Report 24277455 (Version 1)
Quarter: 2024Q3

REPORT INFORMATION
  Report Type: Other
  Country: US (occurrence: US)
  Receive Date: 20240903
  Receipt Date: 20240903
  Transmission Date: 20241016
  Serious: Yes (Hospitalization, Other)
  Sender: DR REDDYS
  Company Number: US-drreddys-SPO/USA/23/0187535

PATIENT
  Age: 32 Year
  Sex: Male

DRUGS (5)
  1. TACROLIMUS [Suspect]
     Active Substance: TACROLIMUS
     Indication: Immunosuppression
  2. GEMCITABINE [Suspect]
     Active Substance: GEMCITABINE
     Indication: Metastases to lung
  3. MYCOPHENOLIC ACID [Suspect]
     Active Substance: MYCOPHENOLIC ACID
     Indication: Immunosuppression
  4. PREDNISONE [Suspect]
     Active Substance: PREDNISONE
     Indication: Immunosuppression
  5. CARBOPLATIN [Concomitant]
     Active Substance: CARBOPLATIN

REACTIONS (6)
  - Transitional cell carcinoma [Recovering/Resolving]
  - Metastases to lymph nodes [Recovering/Resolving]
  - BK virus infection [Recovering/Resolving]
  - Metastases to lung [Recovering/Resolving]
  - Renal tubular injury [Recovering/Resolving]
  - Drug intolerance [Unknown]
